FAERS Safety Report 8054186-0 (Version None)
Quarter: 2012Q1

REPORT INFORMATION
  Report Type: 
  Country: None (occurrence: None)
  Receive Date: 20120118
  Receipt Date: 20120112
  Transmission Date: 20120608
  Serious: Yes (Other)
  Sender: FDA-Public Use
  Company Number: US-ROCHE-1014628

PATIENT
  Sex: Female
  Weight: 64.922 kg

DRUGS (16)
  1. OMALIZUMAB [Suspect]
     Route: 058
     Dates: start: 20120105
  2. PULMICORT-100 [Concomitant]
     Indication: ASTHMA
  3. ACETAMINOPHEN [Concomitant]
     Indication: HEADACHE
  4. COLACE [Concomitant]
     Indication: CONSTIPATION
  5. PREVACID [Concomitant]
     Indication: GASTROOESOPHAGEAL REFLUX DISEASE
  6. XOPENEX [Concomitant]
     Indication: ASTHMA
  7. OMALIZUMAB [Suspect]
     Route: 058
     Dates: start: 20110926
  8. OMALIZUMAB [Suspect]
     Route: 058
     Dates: start: 20111205
  9. LASTACAFT [Concomitant]
     Indication: ROSACEA
  10. SINGULAIR [Concomitant]
     Indication: ASTHMA
  11. RHINOCORT [Concomitant]
     Indication: HYPERSENSITIVITY
  12. ZYRTEC [Concomitant]
     Indication: HYPERSENSITIVITY
  13. OMALIZUMAB [Suspect]
     Indication: ASTHMA
     Dosage: TOTAL 63 MONTHS OF THERAPY RECEIVED
     Route: 058
     Dates: start: 20060901
  14. METROGEL [Concomitant]
     Indication: ROSACEA
  15. OMALIZUMAB [Suspect]
     Dosage: LAST DOSE ADMINISTERED ON 26 SEPTEMBER 2011
     Route: 058
     Dates: start: 20110830
  16. IBUPROFEN [Concomitant]
     Indication: HEADACHE

REACTIONS (2)
  - MATERNAL EXPOSURE DURING PREGNANCY [None]
  - ABORTION SPONTANEOUS [None]
